FAERS Safety Report 12175709 (Version 1)
Quarter: 2016Q1

REPORT INFORMATION
  Report Type: Spontaneous
  Country: CH (occurrence: CH)
  Receive Date: 20160314
  Receipt Date: 20160314
  Transmission Date: 20160526
  Serious: Yes (Other)
  Sender: FDA-Public Use
  Company Number: CH-TEVA-634607ISR

PATIENT
  Sex: Female

DRUGS (1)
  1. CIPROFLOXACIN MEPHA [Suspect]
     Active Substance: CIPROFLOXACIN
     Route: 065
     Dates: start: 20160208, end: 20160209

REACTIONS (1)
  - Rhinitis [Unknown]

NARRATIVE: CASE EVENT DATE: 20160209
